FAERS Safety Report 11450268 (Version 1)
Quarter: 2015Q3

REPORT INFORMATION
  Report Type: Spontaneous
  Country: US (occurrence: US)
  Receive Date: 20150903
  Receipt Date: 20150903
  Transmission Date: 20151125
  Serious: Yes (Hospitalization)
  Sender: FDA-Public Use
  Company Number: US-ROCHE-1085118

PATIENT
  Sex: Male
  Weight: 77.18 kg

DRUGS (3)
  1. RIBAVIRIN. [Suspect]
     Active Substance: RIBAVIRIN
     Indication: PRODUCT USED FOR UNKNOWN INDICATION
     Dosage: IN DIVIDED DOSES
     Route: 048
     Dates: start: 20120511
  2. BOCEPREVIR [Suspect]
     Active Substance: BOCEPREVIR
     Indication: PRODUCT USED FOR UNKNOWN INDICATION
     Route: 048
     Dates: start: 20120608
  3. PEGASYS [Suspect]
     Active Substance: PEGINTERFERON ALFA-2A
     Indication: PRODUCT USED FOR UNKNOWN INDICATION
     Route: 058
     Dates: start: 20120511

REACTIONS (9)
  - Diarrhoea [Unknown]
  - Anaemia [Unknown]
  - Dehydration [Unknown]
  - Headache [Unknown]
  - Vertigo [Unknown]
  - Fatigue [Unknown]
  - Vision blurred [Unknown]
  - Weight decreased [Unknown]
  - White blood cell count decreased [Unknown]
